FAERS Safety Report 13490046 (Version 1)
Quarter: 2017Q2

REPORT INFORMATION
  Report Type: Report from Study
  Country: None (occurrence: US)
  Receive Date: 20170426
  Receipt Date: 20170426
  Transmission Date: 20170830
  Serious: Yes (Hospitalization, Other)
  Sender: FDA-Public Use
  Company Number: US-ABBVIE-17P-163-1842181-00

PATIENT
  Age: 62 Year
  Sex: Female

DRUGS (1)
  1. HUMIRA [Suspect]
     Active Substance: ADALIMUMAB
     Indication: RHEUMATOID ARTHRITIS
     Route: 058
     Dates: start: 20141216, end: 20170414

REACTIONS (7)
  - Arthralgia [Unknown]
  - Malaise [Recovering/Resolving]
  - Diabetes mellitus [Recovering/Resolving]
  - Arthralgia [Recovering/Resolving]
  - Diverticulitis [Unknown]
  - Rheumatoid arthritis [Recovering/Resolving]
  - Abdominal pain upper [Recovering/Resolving]

NARRATIVE: CASE EVENT DATE: 20161222
